FAERS Safety Report 7828622-6 (Version None)
Quarter: 2011Q4

REPORT INFORMATION
  Report Type: 
  Country: None (occurrence: None)
  Receive Date: 20111020
  Receipt Date: 20111013
  Transmission Date: 20120403
  Serious: Yes (Hospitalization)
  Sender: FDA-Public Use
  Company Number: PHHY2011GB90492

PATIENT
  Age: 76 Year
  Sex: Male
  Weight: 76.2 kg

DRUGS (2)
  1. TAMSULOSIN HCL [Suspect]
     Indication: PROSTATITIS
     Dosage: 100 MG, QD
     Route: 048
     Dates: start: 20110711, end: 20110914
  2. DOXYCYCLINE [Concomitant]
     Indication: PROSTATITIS
     Dosage: 100 MG, QD
     Route: 048
     Dates: start: 20110711, end: 20110807

REACTIONS (2)
  - ANXIETY [None]
  - DEPRESSION [None]
